FAERS Safety Report 16129333 (Version 1)
Quarter: 2019Q1

REPORT INFORMATION
  Report Type: Spontaneous
  Country: CN (occurrence: CN)
  Receive Date: 20190328
  Receipt Date: 20190328
  Transmission Date: 20190418
  Serious: Yes (Other)
  Sender: FDA-Public Use
  Company Number: PHHY2019CN069496

PATIENT
  Age: 35 Year
  Sex: Male

DRUGS (4)
  1. FOLINIC ACID [Concomitant]
     Active Substance: LEUCOVORIN
     Indication: PROPHYLAXIS
     Dosage: 15 MG/M2, Q6H
     Route: 065
  2. METHOTREXATE. [Suspect]
     Active Substance: METHOTREXATE
     Indication: PRECURSOR T-LYMPHOBLASTIC LYMPHOMA/LEUKAEMIA
     Dosage: 2 G, Q24H
     Route: 042
  3. FOLINIC ACID [Concomitant]
     Active Substance: LEUCOVORIN
     Dosage: 150 MG, Q3H
     Route: 040
  4. CYTARABINE. [Concomitant]
     Active Substance: CYTARABINE
     Indication: PRECURSOR T-LYMPHOBLASTIC LYMPHOMA/LEUKAEMIA
     Dosage: 100 MG, BID (FROM DAYS 2 TO 5)
     Route: 042

REACTIONS (8)
  - Scrotal ulcer [Recovering/Resolving]
  - Chest discomfort [Recovering/Resolving]
  - Toxicity to various agents [Unknown]
  - Acute kidney injury [Recovering/Resolving]
  - Anal ulcer [Recovering/Resolving]
  - Scrotal oedema [Recovering/Resolving]
  - Nausea [Recovering/Resolving]
  - Oral mucosa erosion [Recovering/Resolving]
